FAERS Safety Report 4765754-3 (Version None)
Quarter: 2005Q3

REPORT INFORMATION
  Report Type: 
  Country: None (occurrence: None)
  Receive Date: 20050912
  Receipt Date: 20050710
  Transmission Date: 20060218
  Serious: Yes (Death, Hospitalization)
  Sender: FDA-Public Use
  Company Number: 2005GB01346

PATIENT
  Age: 91 Year
  Sex: Female

DRUGS (17)
  1. SEROQUEL [Suspect]
     Indication: PSYCHOTIC DISORDER
     Route: 048
     Dates: end: 20041110
  2. SEROQUEL [Suspect]
     Route: 048
     Dates: start: 20050306, end: 20050308
  3. SEROQUEL [Suspect]
     Route: 048
     Dates: start: 20050503, end: 20050706
  4. MODECATE [Suspect]
     Indication: PSYCHOTIC DISORDER
     Route: 065
  5. MODECATE [Suspect]
     Route: 065
  6. LOFEPRAMINE [Suspect]
     Indication: DEPRESSION
     Route: 048
  7. LOFEPRAMINE [Suspect]
     Route: 048
  8. LOFEPRAMINE [Suspect]
     Dosage: INCREASED TO 140MG
     Route: 048
     Dates: start: 20050503
  9. TOLTERODINE [Concomitant]
  10. ALENDRONATE [Concomitant]
  11. LACTOSE SOLUTION [Concomitant]
     Route: 048
  12. ZOPICLONE [Concomitant]
     Indication: INSOMNIA
  13. TRAMADOL HCL [Concomitant]
  14. IBUPROFEN [Concomitant]
     Indication: ANALGESIC EFFECT
     Dates: end: 20050503
  15. PARACETAMOL [Concomitant]
  16. TOLTERODINE [Concomitant]
  17. ADCAL [Concomitant]

REACTIONS (10)
  - COORDINATION ABNORMAL [None]
  - DECREASED APPETITE [None]
  - DRUG INTERACTION [None]
  - DRUG PRESCRIBING ERROR [None]
  - DYSARTHRIA [None]
  - FALL [None]
  - FEELING ABNORMAL [None]
  - PNEUMONIA ASPIRATION [None]
  - SOMNOLENCE [None]
  - TRANSIENT ISCHAEMIC ATTACK [None]
